FAERS Safety Report 5367227-6 (Version None)
Quarter: 2007Q2

REPORT INFORMATION
  Report Type: 
  Country: None (occurrence: None)
  Receive Date: 20070622
  Receipt Date: 20070618
  Transmission Date: 20071010
  Serious: Yes (Other)
  Sender: FDA-Public Use
  Company Number: PHBS2007BR09787

PATIENT
  Age: 48 Year
  Sex: Male
  Weight: 79 kg

DRUGS (3)
  1. TEGRETOL [Suspect]
     Indication: NERVOUS SYSTEM DISORDER
     Dosage: 200 MG, Q8H
     Route: 048
     Dates: start: 20070607
  2. INSULIN HUMAN [Concomitant]
  3. HIDANTAL [Concomitant]
     Indication: NERVOUS SYSTEM DISORDER
     Dosage: 100 MG, Q8H
     Route: 048
     Dates: start: 20070607

REACTIONS (3)
  - DIZZINESS [None]
  - FALL [None]
  - LOSS OF CONSCIOUSNESS [None]
